FAERS Safety Report 5951053-0 (Version None)
Quarter: 2008Q4

REPORT INFORMATION
  Report Type: 
  Country: None (occurrence: None)
  Receive Date: 20081110
  Receipt Date: 20081027
  Transmission Date: 20090506
  Serious: Yes (Hospitalization)
  Sender: FDA-Public Use
  Company Number: IDA-00128

PATIENT
  Age: 70 Year
  Sex: Female

DRUGS (7)
  1. INDERAL [Suspect]
     Indication: SINUS TACHYCARDIA
     Dosage: ORAL FORMULATION: TABLET
     Route: 048
     Dates: start: 20080801, end: 20080819
  2. LULLAN (PEROSPIRONE HYDROCHLORIDE) [Suspect]
     Indication: AUTONOMIC NERVOUS SYSTEM IMBALANCE
     Dosage: ORAL FORMULATION: TABLET / ORAL
     Route: 048
     Dates: start: 20070801, end: 20080801
  3. LULLAN (PEROSPIRONE HYDROCHLORIDE) [Suspect]
     Indication: AUTONOMIC NERVOUS SYSTEM IMBALANCE
     Dosage: ORAL FORMULATION: TABLET / ORAL
     Route: 048
     Dates: start: 20080801, end: 20080819
  4. ANAFRANIL [Suspect]
     Indication: DEPRESSION
     Dosage: ORAL FORMULATION: TABLET /ORAL FORMULATION: TABLET
     Route: 048
     Dates: start: 20070801, end: 20080801
  5. ANAFRANIL [Suspect]
     Indication: DEPRESSION
     Dosage: ORAL FORMULATION: TABLET /ORAL FORMULATION: TABLET
     Route: 048
     Dates: start: 20080801, end: 20080819
  6. DIART (AZOSEMIDE) [Suspect]
     Indication: CARDIAC FAILURE
     Dosage: ORAL FORMULATION: TABLET
     Route: 048
     Dates: end: 20080819
  7. DIAZEPAM [Concomitant]

REACTIONS (4)
  - BRONCHIECTASIS [None]
  - DIFFUSE ALVEOLAR DAMAGE [None]
  - INTERSTITIAL LUNG DISEASE [None]
  - LUNG CONSOLIDATION [None]
